FAERS Safety Report 10353059 (Version 2)
Quarter: 2014Q3

REPORT INFORMATION
  Report Type: Spontaneous
  Country: US (occurrence: US)
  Receive Date: 20140730
  Receipt Date: 20140730
  Transmission Date: 20150326
  Serious: No
  Sender: FDA-Public Use
  Company Number: US-ABBVIE-13P-163-1144427-00

PATIENT
  Sex: Female
  Weight: 81.72 kg

DRUGS (2)
  1. PROVIGIL [Concomitant]
     Active Substance: MODAFINIL
     Indication: NARCOLEPSY
  2. SYNTHROID [Suspect]
     Active Substance: LEVOTHYROXINE SODIUM
     Indication: HYPOTHYROIDISM
     Dates: start: 201306, end: 20130909

REACTIONS (5)
  - Hypertension [Not Recovered/Not Resolved]
  - Chest pain [Unknown]
  - Dyspnoea [Not Recovered/Not Resolved]
  - Palpitations [Unknown]
  - Alopecia [Not Recovered/Not Resolved]

NARRATIVE: CASE EVENT DATE: 2013
